FAERS Safety Report 25422065 (Version 1)
Quarter: 2025Q2

REPORT INFORMATION
  Report Type: Report from Study
  Country: TW (occurrence: TW)
  Receive Date: 20250611
  Receipt Date: 20250611
  Transmission Date: 20250717
  Serious: Yes (Other)
  Sender: ROCHE
  Company Number: TW-ROCHE-10000303488

PATIENT
  Age: 70 Year
  Sex: Male

DRUGS (1)
  1. POLIVY [Suspect]
     Active Substance: POLATUZUMAB VEDOTIN-PIIQ
     Indication: Diffuse large B-cell lymphoma
     Route: 065

REACTIONS (3)
  - Disease recurrence [Unknown]
  - Therapeutic product effect decreased [Unknown]
  - Cytopenia [Unknown]
